FAERS Safety Report 9814724 (Version 1)
Quarter: 2014Q1

REPORT INFORMATION
  Report Type: Spontaneous
  Country: US (occurrence: US)
  Receive Date: 20140113
  Receipt Date: 20140113
  Transmission Date: 20141002
  Serious: No
  Sender: FDA-Public Use
  Company Number: US-SANOFI-AVENTIS-2013SA036846

PATIENT
  Age: 70 Year
  Sex: Male

DRUGS (1)
  1. TAXOTERE [Suspect]
     Indication: LUNG NEOPLASM MALIGNANT
     Dosage: 10 CYCLES OF TAXOTERE
     Dates: start: 20121018

REACTIONS (2)
  - Onychomadesis [Not Recovered/Not Resolved]
  - Nail disorder [Not Recovered/Not Resolved]
